FAERS Safety Report 8733769 (Version 4)
Quarter: 2012Q4

REPORT INFORMATION
  Report Type: 
  Country: HK (occurrence: HK)
  Receive Date: 20120821
  Receipt Date: 20120927
  Transmission Date: 20130627
  Serious: Yes (Death, Life-Threatening, Other)
  Sender: FDA-Public Use
  Company Number: HK-GENZYME-CLOF-1002267

PATIENT
  Age: 52 Year
  Sex: Female
  Weight: 51 kg

DRUGS (8)
  1. EVOLTRA [Suspect]
     Indication: ACUTE MYELOID LEUKAEMIA RECURRENT
     Dosage: 60 mg, qd
     Route: 065
     Dates: start: 20120126, end: 20120130
  2. CYTARABINE [Suspect]
     Indication: ACUTE MYELOID LEUKAEMIA RECURRENT
     Dosage: 1 g/m2, qd
     Route: 065
     Dates: start: 20120126, end: 20120130
  3. ANIDULAFUNGIN [Concomitant]
     Indication: PRODUCT USED FOR UNKNOWN INDICATION
     Dosage: 100 mg, qd
     Route: 065
  4. VANCOMYCIN [Concomitant]
     Indication: PRODUCT USED FOR UNKNOWN INDICATION
     Dosage: 500 mg, qid
     Route: 065
  5. NEXIUM [Concomitant]
     Indication: PRODUCT USED FOR UNKNOWN INDICATION
     Dosage: 40 mg, qd
     Route: 065
  6. MICAFUNGIN [Concomitant]
     Indication: PRODUCT USED FOR UNKNOWN INDICATION
     Dosage: 100 mg, qd
     Route: 065
  7. MEROPENEM [Concomitant]
     Indication: PRODUCT USED FOR UNKNOWN INDICATION
     Dosage: 500 mg, qid
     Route: 065
  8. G-CSF [Concomitant]
     Indication: PRODUCT USED FOR UNKNOWN INDICATION
     Dosage: 300 mcg, bid
     Route: 058

REACTIONS (6)
  - Dermatitis bullous [Fatal]
  - Staphylococcal sepsis [Fatal]
  - Granulocytopenia [Fatal]
  - Palmar-plantar erythrodysaesthesia syndrome [Unknown]
  - Generalised erythema [Fatal]
  - Skin exfoliation [Fatal]
